FAERS Safety Report 8041929-5 (Version None)
Quarter: 2012Q1

REPORT INFORMATION
  Report Type: 
  Country: None (occurrence: None)
  Receive Date: 20120112
  Receipt Date: 20120105
  Transmission Date: 20120608
  Serious: Yes (Other)
  Sender: FDA-Public Use
  Company Number: PHHY2012BR001190

PATIENT
  Age: 91 Year
  Sex: Male

DRUGS (1)
  1. MIACALCIN [Suspect]
     Dosage: 6 FLASKS

REACTIONS (1)
  - DIABETES MELLITUS [None]
